FAERS Safety Report 20516805 (Version 1)
Quarter: 2022Q1

REPORT INFORMATION
  Report Type: Spontaneous
  Country: GB (occurrence: GB)
  Receive Date: 20220225
  Receipt Date: 20220225
  Transmission Date: 20220424
  Serious: Yes (Other)
  Sender: FDA-Public Use
  Company Number: GB-MHRA-TPP22915298C953563YC1644515039200

PATIENT
  Age: 71 Year
  Sex: Female
  Weight: 80 kg

DRUGS (12)
  1. ROSUVASTATIN [Suspect]
     Active Substance: ROSUVASTATIN
     Indication: Product used for unknown indication
     Dosage: 40 MILLIGRAM, UNK, TABLET
     Route: 065
     Dates: start: 20201204
  2. AMLODIPINE [Concomitant]
     Active Substance: AMLODIPINE BESYLATE
     Indication: Blood pressure measurement
     Dosage: 1 DOSAGE FORM, QD, TAKE EVERY MORNING
     Route: 065
     Dates: start: 20180515
  3. ASPIRIN [Concomitant]
     Active Substance: ASPIRIN
     Indication: Product used for unknown indication
     Dosage: 1 DOSAGE FORM, QD
     Route: 065
     Dates: start: 20180116
  4. BISOPROLOL [Concomitant]
     Active Substance: BISOPROLOL
     Indication: Blood pressure measurement
     Dosage: 1 DOSAGE FORM, QD, TAKE EACH MORNING
     Route: 065
     Dates: start: 20180515
  5. CANDESARTAN [Concomitant]
     Active Substance: CANDESARTAN
     Indication: Blood pressure measurement
     Dosage: 1 DOSAGE FORM, QD
     Route: 065
     Dates: start: 20191205
  6. DIHYDROCODEINE [Concomitant]
     Active Substance: DIHYDROCODEINE
     Indication: Pain
     Dosage: 1-2, QID
     Route: 065
     Dates: start: 20200325
  7. EZETIMIBE [Concomitant]
     Active Substance: EZETIMIBE
     Indication: Blood cholesterol
     Dosage: 1 DOSAGE FORM, QD, EACH NIGHT
     Route: 065
     Dates: start: 20201204
  8. NITROGLYCERIN [Concomitant]
     Active Substance: NITROGLYCERIN
     Indication: Chest pain
     Dosage: UNK
     Route: 065
     Dates: start: 20180116
  9. HYPROMELLOSES [Concomitant]
     Active Substance: HYPROMELLOSES
     Indication: Product used for unknown indication
     Dosage: 1 DOSAGE FORM, AS NECESSARY, TO BOTH EYES
     Route: 065
     Dates: start: 20190214
  10. LANSOPRAZOLE [Concomitant]
     Active Substance: LANSOPRAZOLE
     Indication: Dyspepsia
     Dosage: 1 DOSAGE FORM, QD, ONE EACH MORNING
     Route: 065
     Dates: start: 20191205
  11. ISOSORBIDE MONONITRATE [Concomitant]
     Active Substance: ISOSORBIDE MONONITRATE
     Indication: Product used for unknown indication
     Dosage: 0.5 DOSAGE FORM, QD, TAKE IN THE MORNING
     Route: 065
     Dates: start: 20210512
  12. ALBUTEROL [Concomitant]
     Active Substance: ALBUTEROL
     Indication: Product used for unknown indication
     Dosage: 2 DOSAGE FORM, QID
     Route: 055
     Dates: start: 20190423

REACTIONS (2)
  - Muscle spasms [Recovered/Resolved]
  - Diarrhoea [Unknown]

NARRATIVE: CASE EVENT DATE: 20201207
